FAERS Safety Report 9343295 (Version 2)
Quarter: 2013Q3

REPORT INFORMATION
  Report Type: Spontaneous
  Country: US (occurrence: US)
  Receive Date: 20130612
  Receipt Date: 20130805
  Transmission Date: 20140515
  Serious: Yes (Hospitalization)
  Sender: FDA-Public Use
  Company Number: US-ROCHE-1234361

PATIENT
  Age: 59 Year
  Sex: Male
  Weight: 125.11 kg

DRUGS (6)
  1. PEGASYS [Suspect]
     Indication: HEPATITIS C
     Route: 058
     Dates: start: 20130115
  2. RIBAVIRIN [Suspect]
     Indication: HEPATITIS C
     Route: 048
     Dates: start: 20130213
  3. VICTRELIS [Concomitant]
     Route: 048
     Dates: start: 20130213
  4. TUMS [Concomitant]
     Route: 065
     Dates: start: 20130130
  5. AMLODIPINE [Concomitant]
     Indication: HYPERTENSION
     Route: 065
     Dates: start: 20130215, end: 20130228
  6. RIBAVIRIN [Concomitant]
     Route: 048
     Dates: start: 20130115, end: 20130212

REACTIONS (3)
  - Chest pain [Recovered/Resolved]
  - Dizziness [Recovered/Resolved]
  - Hypotension [Recovered/Resolved]
